FAERS Safety Report 9742614 (Version 1)
Quarter: 2013Q4

REPORT INFORMATION
  Report Type: Spontaneous
  Country: US (occurrence: US)
  Receive Date: 20131210
  Receipt Date: 20131210
  Transmission Date: 20140711
  Serious: No
  Sender: FDA-Public Use
  Company Number: US-GILEAD-2009-0024765

PATIENT
  Sex: Female

DRUGS (13)
  1. LETAIRIS [Suspect]
     Indication: PULMONARY ARTERIAL HYPERTENSION
     Route: 048
     Dates: start: 20091009
  2. FUROSEMIDE [Concomitant]
  3. METOPROLOL [Concomitant]
  4. METOLAZONE [Concomitant]
  5. CITRACAL PLUS [Concomitant]
  6. LEVOTHYROXINE [Concomitant]
  7. CALCIUM [Concomitant]
  8. WARFARIN [Concomitant]
  9. IPRATROPIUM BROMIDE [Concomitant]
  10. MULTIVITAMINS [Concomitant]
  11. ALBUTEROL [Concomitant]
  12. POTASSIUM CHLORIDE [Concomitant]
  13. MUCINEX [Concomitant]

REACTIONS (2)
  - Dyspnoea [Unknown]
  - Oedema [Unknown]
